FAERS Safety Report 4350444-1 (Version None)
Quarter: 2004Q2

REPORT INFORMATION
  Report Type: 
  Country: None (occurrence: None)
  Receive Date: 20040427
  Receipt Date: 20040409
  Transmission Date: 20050107
  Serious: Yes (Hospitalization)
  Sender: FDA-Public Use
  Company Number: 20040200111

PATIENT
  Age: 66 Year
  Sex: Male
  Weight: 86.8 kg

DRUGS (4)
  1. HEPARIN [Suspect]
     Indication: CATHETERISATION CARDIAC
     Dosage: 3500 UNITS DAILY
     Dates: start: 20040122
  2. BENADRYL [Concomitant]
  3. FENTANYL [Concomitant]
  4. LIDOCAINE 1% [Concomitant]

REACTIONS (1)
  - ACTIVATED PARTIAL THROMBOPLASTIN TIME PROLONGED [None]
